APPROVED DRUG PRODUCT: VIDEX
Active Ingredient: DIDANOSINE
Strength: 10MG/ML
Dosage Form/Route: FOR SOLUTION;ORAL
Application: N020156 | Product #001
Applicant: BRISTOL MYERS SQUIBB CO
Approved: Oct 9, 1991 | RLD: Yes | RS: No | Type: DISCN